FAERS Safety Report 15084527 (Version 1)
Quarter: 2018Q2

REPORT INFORMATION
  Report Type: Spontaneous
  Country: US (occurrence: US)
  Receive Date: 20180628
  Receipt Date: 20180628
  Transmission Date: 20180711
  Serious: No
  Sender: FDA-Public Use
  Company Number: US-MAYNE PHARMA-2017MYN001885

PATIENT

DRUGS (1)
  1. DORYX [Suspect]
     Active Substance: DOXYCYCLINE HYCLATE
     Indication: LOCALISED INFECTION
     Dosage: 100 MG/AM; 100MG @ NIGHT
     Route: 048
     Dates: start: 20170905, end: 20170916

REACTIONS (3)
  - Pruritus generalised [Not Recovered/Not Resolved]
  - Blister [Recovered/Resolved]
  - Rash erythematous [Not Recovered/Not Resolved]

NARRATIVE: CASE EVENT DATE: 201709
